FAERS Safety Report 8481588-0 (Version None)
Quarter: 2012Q3

REPORT INFORMATION
  Report Type: 
  Country: None (occurrence: None)
  Receive Date: 20120702
  Receipt Date: 20120627
  Transmission Date: 20120928
  Serious: Yes (Life-Threatening, Hospitalization, Other)
  Sender: FDA-Public Use
  Company Number: AU-ASTRAZENECA-2012SE43225

PATIENT
  Sex: Female

DRUGS (2)
  1. ZIPRASIDONE HYDROCHLORIDE [Suspect]
     Route: 065
  2. SEROQUEL [Suspect]
     Indication: POSTPARTUM DEPRESSION
     Route: 048

REACTIONS (4)
  - CARDIAC DISORDER [None]
  - WEIGHT INCREASED [None]
  - TACHYCARDIA [None]
  - ANAPHYLACTIC REACTION [None]
